FAERS Safety Report 7940767 (Version 6)
Quarter: 2013Q2

REPORT INFORMATION
  Report Type: Report from Study
  Country: CA (occurrence: CA)
  Receive Date: 20110511
  Receipt Date: 20130524
  Transmission Date: 20140414
  Serious: Yes (Other)
  Sender: FDA-Public Use
  Company Number: CA-ABBOTT-11P-028-0722824-00

PATIENT
  Age: 60 Year
  Sex: Male
  Weight: 113 kg

DRUGS (8)
  1. HUMIRA [Suspect]
     Indication: PSORIASIS
     Route: 058
     Dates: start: 20090507, end: 20110203
  2. HUMIRA [Suspect]
     Route: 058
     Dates: start: 20110310
  3. TYLENOL [Concomitant]
     Indication: HEADACHE
     Dates: start: 1970
  4. NORVASC [Concomitant]
     Indication: HYPERTENSION
     Dates: start: 20070205
  5. RHOXAL-BISOPROLOL [Concomitant]
     Indication: HYPERTENSION
     Dates: start: 20080528
  6. APO-HYDRO [Concomitant]
     Indication: HYPERTENSION
     Dates: start: 20080528
  7. LIPITOR [Concomitant]
     Indication: HYPERLIPIDAEMIA
     Dates: start: 20020516
  8. ASPIRIN [Concomitant]
     Indication: THROMBOSIS PROPHYLAXIS
     Dates: start: 20061221

REACTIONS (1)
  - Thyroid cancer [Recovered/Resolved]
